FAERS Safety Report 13338564 (Version 2)
Quarter: 2017Q4

REPORT INFORMATION
  Report Type: Spontaneous
  Country: US (occurrence: US)
  Receive Date: 20170315
  Receipt Date: 20171006
  Transmission Date: 20180320
  Serious: No
  Sender: FDA-Public Use
  Company Number: US-LUNDBECK-DKLU2026822

PATIENT
  Sex: Female

DRUGS (4)
  1. NORTHERA [Suspect]
     Active Substance: DROXIDOPA
     Route: 065
  2. NORTHERA [Suspect]
     Active Substance: DROXIDOPA
     Indication: PRODUCT USED FOR UNKNOWN INDICATION
     Dosage: SCHEDULE B AND TITRATION COMPLETE
     Route: 065
     Dates: start: 20170214
  3. NORTHERA [Suspect]
     Active Substance: DROXIDOPA
     Route: 065
     Dates: start: 20170219
  4. NORTHERA [Suspect]
     Active Substance: DROXIDOPA

REACTIONS (7)
  - Nausea [Unknown]
  - Gastric disorder [Unknown]
  - Gastrointestinal pain [Unknown]
  - Abnormal faeces [Unknown]
  - Hypotension [Unknown]
  - Heart rate decreased [Unknown]
  - Blood pressure increased [Unknown]
